FAERS Safety Report 10248184 (Version 1)
Quarter: 2014Q2

REPORT INFORMATION
  Report Type: Spontaneous
  Country: CA (occurrence: CA)
  Receive Date: 20140620
  Receipt Date: 20140620
  Transmission Date: 20141212
  Serious: Yes (Other)
  Sender: FDA-Public Use
  Company Number: PHHY2014CA072413

PATIENT
  Age: 80 Year
  Sex: Male

DRUGS (5)
  1. TIMOLOL SANDOZ [Suspect]
     Dosage: UNK UKN, QD
     Route: 047
  2. BETAHISTINE [Concomitant]
  3. FENOFIBRATE [Concomitant]
  4. RABEPRAZOLE [Concomitant]
  5. RAMIPRIL [Concomitant]

REACTIONS (3)
  - Dizziness [Recovered/Resolved]
  - Headache [Recovered/Resolved]
  - Product quality issue [Recovered/Resolved]
